FAERS Safety Report 21961946 (Version 6)
Quarter: 2023Q2

REPORT INFORMATION
  Report Type: Report from Study
  Country: CA (occurrence: CA)
  Receive Date: 20230207
  Receipt Date: 20230623
  Transmission Date: 20230721
  Serious: Yes (Other)
  Sender: FDA-Public Use
  Company Number: CA-GLAXOSMITHKLINE-CA2022AMR154528

PATIENT

DRUGS (10)
  1. MEPOLIZUMAB [Suspect]
     Active Substance: MEPOLIZUMAB
     Indication: Asthma
     Dosage: 100 MG, Q4W
     Route: 058
     Dates: start: 20191021
  2. MEPOLIZUMAB [Suspect]
     Active Substance: MEPOLIZUMAB
     Dosage: 100 MG, Q4W
     Route: 058
     Dates: start: 20191021
  3. MEPOLIZUMAB [Suspect]
     Active Substance: MEPOLIZUMAB
     Dosage: 100 MG, Q4W
     Route: 058
     Dates: start: 20191021
  4. AZITHROMYCIN [Concomitant]
     Active Substance: AZITHROMYCIN
     Indication: Wheezing
     Dosage: 2 DF, QD INITIAL DOSE THEN 1 TABLET ONCE DAILY
     Dates: end: 20221203
  5. AZITHROMYCIN [Concomitant]
     Active Substance: AZITHROMYCIN
     Indication: Dyspnoea
     Dosage: 1 DF, QD, 5 DAYS
  6. AZITHROMYCIN [Concomitant]
     Active Substance: AZITHROMYCIN
     Indication: Lower respiratory tract congestion
  7. PREDNISONE [Concomitant]
     Active Substance: PREDNISONE
     Indication: Wheezing
     Dosage: 50 MG,FOR 5 DAYS
     Dates: end: 20221203
  8. PREDNISONE [Concomitant]
     Active Substance: PREDNISONE
     Indication: Dyspnoea
  9. PREDNISONE [Concomitant]
     Active Substance: PREDNISONE
     Indication: Lower respiratory tract congestion
  10. VENTOLIN [Concomitant]
     Active Substance: ALBUTEROL SULFATE
     Indication: Product used for unknown indication
     Dosage: UNK, PRN

REACTIONS (25)
  - Diabetes mellitus [Unknown]
  - Cataract [Recovering/Resolving]
  - Illness [Unknown]
  - Asthenia [Not Recovered/Not Resolved]
  - Nausea [Recovering/Resolving]
  - Diarrhoea [Recovering/Resolving]
  - Headache [Unknown]
  - Somnolence [Unknown]
  - Cough [Unknown]
  - Loss of personal independence in daily activities [Unknown]
  - Dyspnoea [Unknown]
  - Wheezing [Not Recovered/Not Resolved]
  - COVID-19 [Not Recovered/Not Resolved]
  - Dizziness [Not Recovered/Not Resolved]
  - Lower respiratory tract congestion [Recovering/Resolving]
  - SARS-CoV-2 test positive [Unknown]
  - Fatigue [Not Recovered/Not Resolved]
  - Hypersomnia [Unknown]
  - Weight decreased [Unknown]
  - Dysphonia [Not Recovered/Not Resolved]
  - Respiratory rate increased [Unknown]
  - Sleep disorder [Unknown]
  - Oxygen saturation decreased [Not Recovered/Not Resolved]
  - Carbuncle [Recovered/Resolved]
  - Blood pressure systolic increased [Unknown]

NARRATIVE: CASE EVENT DATE: 20220101
